FAERS Safety Report 16236119 (Version 3)
Quarter: 2019Q3

REPORT INFORMATION
  Report Type: Report from Study
  Country: US (occurrence: US)
  Receive Date: 20190425
  Receipt Date: 20190814
  Transmission Date: 20191004
  Serious: Yes (Life-Threatening, Hospitalization)
  Sender: FDA-Public Use
  Company Number: US-EMD SERONO-9082490

PATIENT
  Age: 34 Year
  Sex: Female

DRUGS (5)
  1. VIBRAMYCIN [Suspect]
     Active Substance: DOXYCYCLINE
     Indication: BRONCHITIS
     Dosage: STARTED IN MAR 2019.
  2. SYNTHROID [Concomitant]
     Active Substance: LEVOTHYROXINE SODIUM
     Indication: PRODUCT USED FOR UNKNOWN INDICATION
  3. REBIF [Suspect]
     Active Substance: INTERFERON BETA-1A
     Route: 058
     Dates: start: 201812, end: 20190317
  4. REBIF [Suspect]
     Active Substance: INTERFERON BETA-1A
     Indication: MULTIPLE SCLEROSIS
     Route: 058
     Dates: start: 20180814, end: 201812
  5. ADDERALL [Concomitant]
     Active Substance: AMPHETAMINE ASPARTATE\AMPHETAMINE SULFATE\DEXTROAMPHETAMINE SACCHARATE\DEXTROAMPHETAMINE SULFATE
     Indication: PRODUCT USED FOR UNKNOWN INDICATION

REACTIONS (16)
  - Bronchitis [Recovered/Resolved]
  - Urinary tract infection [Recovered/Resolved]
  - Dehydration [Unknown]
  - Tricuspid valve incompetence [Unknown]
  - Electrocardiogram ST segment depression [Unknown]
  - Abdominal pain [Unknown]
  - Nausea [Unknown]
  - Drug intolerance [Unknown]
  - Heart rate increased [Unknown]
  - Angina pectoris [Unknown]
  - Cardiac arrest [Unknown]
  - Pyrexia [Unknown]
  - Appendicitis [Recovered/Resolved]
  - Gastrointestinal procedural complication [Unknown]
  - Malaise [Unknown]
  - Aspartate aminotransferase increased [Unknown]

NARRATIVE: CASE EVENT DATE: 201902
